FAERS Safety Report 8415204-0 (Version None)
Quarter: 2012Q2

REPORT INFORMATION
  Report Type: 
  Country: None (occurrence: None)
  Receive Date: 20120606
  Receipt Date: 20120531
  Transmission Date: 20120825
  Serious: Yes (Hospitalization, Other)
  Sender: FDA-Public Use
  Company Number: US-PFIZER INC-2012132218

PATIENT
  Age: 38 Year
  Sex: Female
  Weight: 54.422 kg

DRUGS (3)
  1. PREDNISONE [Concomitant]
     Indication: HYPOAESTHESIA
     Dosage: UNK
  2. BYSTOLIC [Concomitant]
     Indication: HYPERTENSION
     Dosage: UNK
     Dates: start: 20110101
  3. EFFEXOR [Suspect]
     Indication: DEPRESSION
     Dosage: UNK

REACTIONS (1)
  - CEREBROVASCULAR ACCIDENT [None]
